FAERS Safety Report 8020233-5 (Version None)
Quarter: 2012Q1

REPORT INFORMATION
  Report Type: 
  Country: None (occurrence: None)
  Receive Date: 20120103
  Receipt Date: 20111221
  Transmission Date: 20120608
  Serious: Yes (Hospitalization, Other)
  Sender: FDA-Public Use
  Company Number: CA-MEDIMMUNE-MEDI-0014189

PATIENT
  Sex: Male
  Weight: 4.115 kg

DRUGS (12)
  1. SYNAGIS [Suspect]
     Dates: start: 20101230, end: 20110324
  2. SYNAGIS [Suspect]
     Dates: start: 20111103, end: 20111125
  3. TOPIRAMATE [Concomitant]
  4. ACETAMINOPHEN [Concomitant]
  5. SODIUM CHLORIDE [Concomitant]
  6. TOCOPHERYL ACETATE [Concomitant]
  7. GLYCOPYRROLATE INJECTION, USP [Concomitant]
  8. PREQUAD [Concomitant]
     Dates: start: 20110908, end: 20110908
  9. PEDIACEL VACCINATION [Concomitant]
     Dates: start: 20110309, end: 20111027
  10. MENINGOCOCCAL POLYSACCHARIDE [Concomitant]
     Dates: start: 20110908, end: 20110908
  11. SYNFLORIX [Concomitant]
     Dates: start: 20101012, end: 20101227
  12. PREVNAR [Concomitant]
     Dates: start: 20110908, end: 20110908

REACTIONS (13)
  - BODY TEMPERATURE [None]
  - VOMITING [None]
  - COUGH [None]
  - RESPIRATORY DISORDER [None]
  - UPPER RESPIRATORY TRACT INFECTION [None]
  - PNEUMONIA [None]
  - PNEUMONIA ASPIRATION [None]
  - CONSTIPATION [None]
  - BODY TEMPERATURE DECREASED [None]
  - CONVULSION [None]
  - PYREXIA [None]
  - VIRAL INFECTION [None]
  - NASAL CONGESTION [None]
